FAERS Safety Report 8913602 (Version 2)
Quarter: 2013Q1

REPORT INFORMATION
  Report Type: Spontaneous
  Country: US (occurrence: US)
  Receive Date: 20121119
  Receipt Date: 20130108
  Transmission Date: 20140127
  Serious: No
  Sender: FDA-Public Use
  Company Number: US-JNJFOC-20121102193

PATIENT
  Age: 23 Year
  Sex: Male
  Weight: 68.77 kg

DRUGS (1)
  1. INVEGA SUSTENNA [Suspect]
     Indication: PSYCHOTIC DISORDER
     Route: 030
     Dates: start: 20121019, end: 20121102

REACTIONS (2)
  - Enuresis [Recovered/Resolved]
  - Bladder disorder [Recovered/Resolved]
